FAERS Safety Report 20491232 (Version 1)
Quarter: 2022Q1

REPORT INFORMATION
  Report Type: Spontaneous
  Country: US (occurrence: US)
  Receive Date: 20220218
  Receipt Date: 20220218
  Transmission Date: 20220424
  Serious: No
  Sender: FDA-Public Use
  Company Number: US-MIRM-000237

PATIENT
  Sex: Female

DRUGS (2)
  1. LIVMARLI [Suspect]
     Active Substance: MARALIXIBAT CHLORIDE
     Indication: Product used for unknown indication
     Route: 050
  2. 3118011 (GLOBALC3Sep19): Naltrexone [Concomitant]
     Indication: Product used for unknown indication

REACTIONS (1)
  - Pruritus [Unknown]
